FAERS Safety Report 13179567 (Version 2)
Quarter: 2017Q2

REPORT INFORMATION
  Report Type: Spontaneous
  Country: US (occurrence: US)
  Receive Date: 20170202
  Receipt Date: 20170424
  Transmission Date: 20170830
  Serious: Yes (Hospitalization, Other)
  Sender: FDA-Public Use
  Company Number: US-TEVA-734900USA

PATIENT
  Sex: Female

DRUGS (15)
  1. COPAXONE [Suspect]
     Active Substance: GLATIRAMER ACETATE
     Indication: MULTIPLE SCLEROSIS
     Route: 058
  2. CLOBETASOL [Concomitant]
     Active Substance: CLOBETASOL
     Dosage: 0.05%
  3. NORTRYPTYLINE [Concomitant]
  4. MOMETASONE [Concomitant]
     Active Substance: MOMETASONE
  5. FIBERCON [Concomitant]
     Active Substance: CALCIUM POLYCARBOPHIL
  6. DIOVAN [Concomitant]
     Active Substance: VALSARTAN
  7. PROTONIX [Concomitant]
     Active Substance: PANTOPRAZOLE SODIUM
  8. DICLOFENAC [Concomitant]
     Active Substance: DICLOFENAC
  9. ATORVASTATIN [Concomitant]
     Active Substance: ATORVASTATIN
  10. VALSARTAN AND HYDROCHLOROTHIAZIDE [Concomitant]
     Active Substance: HYDROCHLOROTHIAZIDE\VALSARTAN
  11. PROPANOLOL [Concomitant]
     Active Substance: PROPRANOLOL HYDROCHLORIDE
  12. TRIAMCINOLON [Concomitant]
  13. VALACYCLOVIR [Concomitant]
     Active Substance: VALACYCLOVIR HYDROCHLORIDE
  14. BACLOFEN. [Concomitant]
     Active Substance: BACLOFEN
  15. KETOCONAZOLE. [Concomitant]
     Active Substance: KETOCONAZOLE

REACTIONS (6)
  - Injection site warmth [Unknown]
  - Mobility decreased [Unknown]
  - Injection site haemorrhage [Unknown]
  - Cellulitis [Unknown]
  - Injection site induration [Unknown]
  - Muscular weakness [Unknown]
